FAERS Safety Report 15048387 (Version 1)
Quarter: 2018Q2

REPORT INFORMATION
  Report Type: Report from Study
  Country: None (occurrence: US)
  Receive Date: 20180622
  Receipt Date: 20180622
  Transmission Date: 20180711
  Serious: Yes (Other)
  Sender: FDA-Public Use
  Company Number: US-ABBVIE-18K-163-2358468-00

PATIENT
  Sex: Female

DRUGS (4)
  1. HUMIRA [Suspect]
     Active Substance: ADALIMUMAB
     Indication: COLITIS ULCERATIVE
  2. HUMIRA [Suspect]
     Active Substance: ADALIMUMAB
     Indication: ANKYLOSING SPONDYLITIS
  3. HUMIRA [Suspect]
     Active Substance: ADALIMUMAB
     Indication: RHEUMATOID ARTHRITIS
     Route: 058
     Dates: start: 2008
  4. HUMIRA [Suspect]
     Active Substance: ADALIMUMAB
     Indication: PSORIASIS

REACTIONS (11)
  - Joint range of motion decreased [Unknown]
  - Anaemia [Unknown]
  - Drug effect decreased [Unknown]
  - Arthralgia [Unknown]
  - Heart valve stenosis [Unknown]
  - Osteoarthritis [Unknown]
  - Hypersomnia [Unknown]
  - Blood iron decreased [Unknown]
  - Drug resistance [Unknown]
  - Renal failure [Unknown]
  - Finger deformity [Unknown]
